FAERS Safety Report 7166840-3 (Version None)
Quarter: 2010Q4

REPORT INFORMATION
  Report Type: 
  Country: None (occurrence: None)
  Receive Date: 20101216
  Receipt Date: 20101207
  Transmission Date: 20110411
  Serious: Yes (Other)
  Sender: FDA-Public Use
  Company Number: CA-JNJFOC-20101203762

PATIENT
  Age: 81 Year
  Sex: Female
  Weight: 95.71 kg

DRUGS (9)
  1. REMICADE [Suspect]
     Indication: RHEUMATOID ARTHRITIS
     Dosage: DURATION OF USE 4 YEARS
     Route: 042
  2. METHOTREXATE [Concomitant]
     Route: 048
  3. PLAQUENIL [Concomitant]
     Route: 048
  4. CELECOXIB [Concomitant]
     Route: 048
  5. FOLIC ACID [Concomitant]
     Route: 048
  6. FOSAMAX [Concomitant]
     Route: 048
  7. VITAMIN D [Concomitant]
     Route: 048
  8. PRILOSEC [Concomitant]
     Route: 048
  9. LEVOCARB [Concomitant]
     Route: 048

REACTIONS (1)
  - COLON CANCER [None]
